FAERS Safety Report 7319361-9 (Version None)
Quarter: 2011Q1

REPORT INFORMATION
  Report Type: 
  Country: None (occurrence: None)
  Receive Date: 20110228
  Receipt Date: 20100216
  Transmission Date: 20110831
  Serious: No
  Sender: FDA-Public Use
  Company Number: A0844738A

PATIENT
  Age: 28 Year
  Sex: Female

DRUGS (3)
  1. BIRTH CONTROL PILLS [Concomitant]
  2. LAMICTAL [Suspect]
     Indication: BIPOLAR DISORDER
     Dosage: 200MG TWICE PER DAY
     Route: 048
     Dates: start: 20020101
  3. VALTREX [Suspect]
     Indication: GENITAL HERPES
     Dosage: 200MG TWICE PER DAY
     Route: 048
     Dates: start: 20020101

REACTIONS (3)
  - RASH [None]
  - URTICARIA [None]
  - PRURITUS [None]
